FAERS Safety Report 8777338 (Version 2)
Quarter: 2012Q4

REPORT INFORMATION
  Report Type: 
  Country: US (occurrence: US)
  Receive Date: 20120911
  Receipt Date: 20120925
  Transmission Date: 20130627
  Serious: No
  Sender: FDA-Public Use
  Company Number: US-PFIZER INC-2012219460

PATIENT
  Age: 66 Year
  Sex: Male

DRUGS (2)
  1. VIAGRA [Suspect]
     Indication: ERECTILE DYSFUNCTION
     Dosage: 50 mg, 1x/day
     Route: 048
  2. VIAGRA [Suspect]
     Dosage: 50 mg, 2x/day
     Route: 048

REACTIONS (3)
  - Hypopnoea [Recovered/Resolved]
  - Dizziness [Recovered/Resolved]
  - Fear [Unknown]
